FAERS Safety Report 24107103 (Version 1)
Quarter: 2024Q3

REPORT INFORMATION
  Report Type: Spontaneous
  Country: US (occurrence: US)
  Receive Date: 20240718
  Receipt Date: 20240718
  Transmission Date: 20241017
  Serious: No
  Sender: ACCORD
  Company Number: US-Accord-368895

PATIENT
  Sex: Female

DRUGS (1)
  1. LETROZOLE [Suspect]
     Active Substance: LETROZOLE
     Indication: Product used for unknown indication
     Dosage: 2.5 MG BY MOUTH
     Route: 048

REACTIONS (3)
  - Nausea [Unknown]
  - Malaise [Unknown]
  - Chromaturia [Unknown]
